FAERS Safety Report 4773240-X (Version None)
Quarter: 2005Q3

REPORT INFORMATION
  Report Type: 
  Country: None (occurrence: None)
  Receive Date: 20050916
  Receipt Date: 20050906
  Transmission Date: 20060218
  Serious: Yes (Other)
  Sender: FDA-Public Use
  Company Number: 2005124753

PATIENT
  Age: 41 Year
  Sex: Male
  Weight: 80.7403 kg

DRUGS (4)
  1. DILANTIN [Suspect]
     Indication: CONVULSION
     Dosage: 300 MG (50 MG, 1 IN 1 D), ORAL
     Route: 048
  2. SAW PALMETTO (SAW PALMETTO) [Suspect]
     Indication: ILL-DEFINED DISORDER
     Dosage: ORAL
     Route: 048
     Dates: start: 20050101
  3. MULTIPLE VITAMINS (ASCORBIC ACID, ERGOCALCIFEROL, FOLIC ACID, RETINOL, [Concomitant]
  4. OMEGA-3 (OMEGA-3 TRIGLYCERIDES) [Concomitant]

REACTIONS (16)
  - ABASIA [None]
  - ABNORMAL BEHAVIOUR [None]
  - ANGER [None]
  - ANTICONVULSANT DRUG LEVEL DECREASED [None]
  - ASTHENIA [None]
  - CONVULSION [None]
  - DISLOCATION OF VERTEBRA [None]
  - DIZZINESS [None]
  - DRUG EFFECT DECREASED [None]
  - DRUG LEVEL FLUCTUATING [None]
  - DRUG TOXICITY [None]
  - FEELING ABNORMAL [None]
  - HEART RATE DECREASED [None]
  - PARAESTHESIA [None]
  - SOMNOLENCE [None]
  - VISUAL DISTURBANCE [None]
